FAERS Safety Report 23157570 (Version 1)
Quarter: 2023Q4

REPORT INFORMATION
  Report Type: Spontaneous
  Country: FR (occurrence: FR)
  Receive Date: 20231108
  Receipt Date: 20231108
  Transmission Date: 20240110
  Serious: Yes (Hospitalization)
  Sender: FDA-Public Use
  Company Number: FR-AFSSAPS-2023088499

PATIENT
  Age: 35 Year
  Sex: Female

DRUGS (2)
  1. FLUCONAZOLE [Interacting]
     Active Substance: FLUCONAZOLE
     Indication: Oral fungal infection
     Dosage: 50 MILLIGRAM, ONCE A DAY
     Route: 048
     Dates: start: 20230904, end: 20231014
  2. SINTROM [Interacting]
     Active Substance: ACENOCOUMAROL
     Indication: Factor V Leiden mutation
     Dosage: 4.5 MILLIGRAM, EVERY OTHER DAY
     Route: 048
     Dates: end: 20230914

REACTIONS (3)
  - Renal haematoma [Recovered/Resolved]
  - International normalised ratio increased [Recovered/Resolved]
  - Drug interaction [Recovered/Resolved]

NARRATIVE: CASE EVENT DATE: 20230904
